FAERS Safety Report 7641609-1 (Version None)
Quarter: 2011Q3

REPORT INFORMATION
  Report Type: 
  Country: None (occurrence: None)
  Receive Date: 20110727
  Receipt Date: 20110727
  Transmission Date: 20111222
  Serious: Yes (Hospitalization)
  Sender: FDA-Public Use
  Company Number: None

PATIENT
  Sex: Female
  Weight: 63.9 kg

DRUGS (2)
  1. CARBOPLATIN [Suspect]
     Dosage: 785 MG
  2. PACLITAXEL [Suspect]
     Dosage: 294 MG

REACTIONS (2)
  - ANAEMIA [None]
  - INTRAVASCULAR HAEMOLYSIS [None]
